FAERS Safety Report 7069194-6 (Version None)
Quarter: 2010Q4

REPORT INFORMATION
  Report Type: 
  Country: None (occurrence: None)
  Receive Date: 20101028
  Receipt Date: 20101019
  Transmission Date: 20110411
  Serious: Yes (Hospitalization)
  Sender: FDA-Public Use
  Company Number: B0679578A

PATIENT
  Age: 24 Year
  Sex: Male

DRUGS (3)
  1. KEPPRA [Suspect]
     Indication: EPILEPSY
     Route: 065
  2. LAMICTAL [Suspect]
     Indication: EPILEPSY
     Dosage: 50MG PER DAY
     Route: 048
     Dates: start: 20100801
  3. LACOSAMIDE [Suspect]
     Indication: EPILEPSY
     Route: 048
     Dates: start: 20100929

REACTIONS (11)
  - AGGRESSION [None]
  - AMNESIA [None]
  - DECREASED APPETITE [None]
  - DEJA VU [None]
  - DEPRESSION [None]
  - DRUG INEFFECTIVE [None]
  - DYSPEPSIA [None]
  - HOMICIDAL IDEATION [None]
  - NAUSEA [None]
  - PERSONALITY CHANGE [None]
  - STATUS EPILEPTICUS [None]
